FAERS Safety Report 23130920 (Version 1)
Quarter: 2023Q4

REPORT INFORMATION
  Report Type: Report from Study
  Country: NL (occurrence: NL)
  Receive Date: 20231031
  Receipt Date: 20231031
  Transmission Date: 20240109
  Serious: Yes (Hospitalization)
  Sender: FDA-Public Use
  Company Number: NL-ABBVIE-5474080

PATIENT
  Age: 66 Year
  Sex: Male

DRUGS (6)
  1. CARBIDOPA\LEVODOPA [Suspect]
     Active Substance: CARBIDOPA\LEVODOPA
     Indication: Parkinson^s disease
     Dosage: MD: 5.7ML, CD: 4.4ML.H, ED: 4.4ML CND: 3.2ML/H
     Route: 050
     Dates: start: 20230322, end: 20230322
  2. CARBIDOPA\LEVODOPA [Suspect]
     Active Substance: CARBIDOPA\LEVODOPA
     Dosage: MD: 5.8ML, CD: 4.5ML.H, ED: 4.4ML CND: 3.2ML/H? REMAINS AT 24 HOURS
     Route: 050
     Dates: start: 20230823
  3. CARBIDOPA\LEVODOPA [Suspect]
     Active Substance: CARBIDOPA\LEVODOPA
     Dosage: MD: 5.7ML, CD: 4.4ML.H, ED: 4.4ML CND: 3.2ML/H? REMAINS AT 24 HOURS
     Route: 050
     Dates: start: 20230711, end: 20230711
  4. CARBIDOPA\LEVODOPA [Suspect]
     Active Substance: CARBIDOPA\LEVODOPA
     Dosage: REMAINS AT 24 HOURS
     Route: 050
     Dates: start: 20110415
  5. EXELON [Concomitant]
     Active Substance: RIVASTIGMINE TARTRATE
     Indication: Product used for unknown indication
  6. CLOZAPINE [Concomitant]
     Active Substance: CLOZAPINE
     Indication: Product used for unknown indication

REACTIONS (2)
  - COVID-19 [Recovered/Resolved]
  - Enteral nutrition [Unknown]
